FAERS Safety Report 6768150-2 (Version None)
Quarter: 2010Q2

REPORT INFORMATION
  Report Type: 
  Country: None (occurrence: None)
  Receive Date: 20100614
  Receipt Date: 20100610
  Transmission Date: 20101027
  Serious: Yes (Death)
  Sender: FDA-Public Use
  Company Number: US-ASTRAZENECA-2010SE06108

PATIENT
  Age: 47 Year
  Sex: Female

DRUGS (5)
  1. SEROQUEL XR [Suspect]
     Indication: AFFECTIVE DISORDER
     Dosage: LETHAL DOSE OF 1600 MG
     Route: 048
  2. SEROQUEL XR [Suspect]
     Route: 048
  3. LAMICTAL [Concomitant]
  4. PROZAC [Concomitant]
  5. KLONOPIN [Concomitant]

REACTIONS (2)
  - DRUG TOXICITY [None]
  - OVERDOSE [None]
